FAERS Safety Report 7814393-6 (Version None)
Quarter: 2011Q4

REPORT INFORMATION
  Report Type: 
  Country: None (occurrence: None)
  Receive Date: 20111014
  Receipt Date: 20111003
  Transmission Date: 20120403
  Serious: Yes (Other)
  Sender: FDA-Public Use
  Company Number: PHHY2011JP89048

PATIENT
  Sex: Male

DRUGS (1)
  1. SANDOSTATIN [Suspect]
     Indication: GASTROINTESTINAL OBSTRUCTION
     Dosage: UNK UKN, UNK
     Route: 058

REACTIONS (3)
  - CONDITION AGGRAVATED [None]
  - ILEUS [None]
  - HYPERGLYCAEMIA [None]
